FAERS Safety Report 10657917 (Version 1)
Quarter: 2014Q4

REPORT INFORMATION
  Report Type: Spontaneous
  Country: US (occurrence: US)
  Receive Date: 20141217
  Receipt Date: 20141217
  Transmission Date: 20150529
  Serious: No
  Sender: FDA-Public Use
  Company Number: US-009507513-1412USA006366

PATIENT

DRUGS (1)
  1. NEXPLANON [Suspect]
     Active Substance: ETONOGESTREL
     Dosage: UNK
     Route: 059
     Dates: start: 2014

REACTIONS (4)
  - Scab [Unknown]
  - Implant site pain [Unknown]
  - Implant site erythema [Unknown]
  - Device deployment issue [Unknown]

NARRATIVE: CASE EVENT DATE: 2014
